FAERS Safety Report 14140111 (Version 2)
Quarter: 2017Q4

REPORT INFORMATION
  Report Type: Spontaneous
  Country: NO (occurrence: NO)
  Receive Date: 20171030
  Receipt Date: 20171107
  Transmission Date: 20180321
  Serious: Yes (Hospitalization, Other)
  Sender: FDA-Public Use
  Company Number: NO-TAKEDA-2017TUS022111

PATIENT
  Age: 2 Week
  Sex: Female
  Weight: 1.84 kg

DRUGS (2)
  1. BRINTELLIX [Suspect]
     Active Substance: VORTIOXETINE HYDROBROMIDE
     Indication: DEPRESSION
     Dosage: 20 MG, QD
     Route: 063
  2. BRINTELLIX [Suspect]
     Active Substance: VORTIOXETINE HYDROBROMIDE
     Dosage: 10 MG, QD
     Route: 063
     Dates: start: 20170619

REACTIONS (9)
  - Respiration abnormal [Recovering/Resolving]
  - Sedation [Recovering/Resolving]
  - Musculoskeletal stiffness [Recovering/Resolving]
  - Exposure during breast feeding [Recovering/Resolving]
  - Exposure during pregnancy [Recovering/Resolving]
  - Fatigue [Recovering/Resolving]
  - Oxygen saturation decreased [Recovering/Resolving]
  - Eye movement disorder [Recovering/Resolving]
  - Infantile apnoea [Recovering/Resolving]
